FAERS Safety Report 7122700-5 (Version None)
Quarter: 2010Q4

REPORT INFORMATION
  Report Type: 
  Country: None (occurrence: None)
  Receive Date: 20101124
  Receipt Date: 20101025
  Transmission Date: 20110411
  Serious: Yes (Hospitalization)
  Sender: FDA-Public Use
  Company Number: CZ-AMGEN-CZECT2010002194

PATIENT

DRUGS (4)
  1. ETANERCEPT [Suspect]
     Indication: RHEUMATOID ARTHRITIS
     Dosage: 50 MG, QWK
     Dates: start: 20091223, end: 20100608
  2. FAMOTIDINE [Concomitant]
     Dates: start: 20031101
  3. CALCIUM [Concomitant]
     Route: 048
     Dates: start: 20081201
  4. PREDNISOLONE [Concomitant]
     Route: 048
     Dates: start: 20100615

REACTIONS (1)
  - THYMOMA [None]
